FAERS Safety Report 4990942-0 (Version None)
Quarter: 2006Q2

REPORT INFORMATION
  Report Type: 
  Country: None (occurrence: None)
  Receive Date: 20060428
  Receipt Date: 20060417
  Transmission Date: 20061013
  Serious: Yes (Death, Hospitalization)
  Sender: FDA-Public Use
  Company Number: 163-C5013-05040385

PATIENT
  Age: 76 Year
  Sex: Female
  Weight: 55.7 kg

DRUGS (3)
  1. CC-5013 (LENALIDOMIDE) (CAPSULES) [Suspect]
     Indication: MULTIPLE MYELOMA
     Dosage: 25 MG, QD ON DAYS 1-21 OF 28D CYCLE, ORAL
     Route: 048
     Dates: start: 20060320, end: 20060407
  2. DEXAMETHASONE [Suspect]
     Indication: MULTIPLE MYELOMA
     Dosage: 40 MG, QD ON DAYS 1-4, 9-12, 17-20 OF 28D CYCLE, ORAL
     Route: 048
     Dates: start: 20060320, end: 20060407
  3. DILAUDID [Concomitant]

REACTIONS (17)
  - CONFUSIONAL STATE [None]
  - DECREASED ACTIVITY [None]
  - DEHYDRATION [None]
  - FAILURE TO THRIVE [None]
  - GENERAL PHYSICAL HEALTH DETERIORATION [None]
  - HAEMATOCRIT DECREASED [None]
  - HAEMOGLOBIN DECREASED [None]
  - HYPOTENSION [None]
  - KLEBSIELLA BACTERAEMIA [None]
  - LOSS OF CONSCIOUSNESS [None]
  - NEUTROPENIA [None]
  - RESPIRATORY FAILURE [None]
  - RESPIRATORY TRACT INFECTION [None]
  - SEPSIS [None]
  - STAPHYLOCOCCAL INFECTION [None]
  - THROMBOCYTOPENIA [None]
  - WHITE BLOOD CELL COUNT DECREASED [None]
